FAERS Safety Report 9648273 (Version 1)
Quarter: 2013Q4

REPORT INFORMATION
  Report Type: Spontaneous
  Country: US (occurrence: None)
  Receive Date: 20131024
  Receipt Date: 20131024
  Transmission Date: 20140711
  Serious: No
  Sender: FDA-Public Use
  Company Number: None

PATIENT
  Age: 71 Year
  Sex: Male
  Weight: 113.4 kg

DRUGS (15)
  1. XARELTO (RIVAROXABAN) JANSSEN PHARMACEUTICALS, INC [Suspect]
     Route: 048
     Dates: start: 20130823, end: 20130913
  2. METOPROL [Concomitant]
  3. ARMOUR THYROID [Concomitant]
  4. ELIQUIS [Concomitant]
  5. TESTOSTERONE CYRLONATE [Concomitant]
  6. PRIMADOLPHUS [Concomitant]
  7. COQ10 [Concomitant]
  8. B-COMPLEX [Concomitant]
  9. VIT D3 [Concomitant]
  10. ZINC [Concomitant]
  11. MAGNESIUM TARTRATE [Concomitant]
  12. MYOMIN [Concomitant]
  13. KIDNEY CHI [Concomitant]
  14. ASPARAGUS [Concomitant]
  15. CORTACYPSE [Concomitant]

REACTIONS (4)
  - Local swelling [None]
  - Arthralgia [None]
  - Erectile dysfunction [None]
  - Abasia [None]
